FAERS Safety Report 10263077 (Version 2)
Quarter: 2014Q2

REPORT INFORMATION
  Report Type: Report from Study
  Country: US (occurrence: US)
  Receive Date: 20140626
  Receipt Date: 20140626
  Transmission Date: 20141212
  Serious: Yes (Life-Threatening, Hospitalization, Disabling)
  Sender: FDA-Public Use
  Company Number: US-MYLANLABS-2014S1000567

PATIENT
  Age: 56 Year
  Sex: Female
  Weight: 87.8 kg

DRUGS (11)
  1. CLOZAPINE TABLETS [Suspect]
     Indication: SCHIZOAFFECTIVE DISORDER
     Route: 048
     Dates: start: 201310, end: 20140101
  2. OLANZAPINE [Suspect]
     Indication: SCHIZOPHRENIA
     Dates: end: 20140102
  3. LEVOTHYROXINE [Concomitant]
  4. DEPAKOTE [Concomitant]
  5. LURASIDONE [Concomitant]
  6. LISINOPRIL [Concomitant]
  7. MULTIVITAMIN [Concomitant]
  8. OMEPRAZOLE [Concomitant]
  9. CALCIUM [Concomitant]
  10. ADVAIR [Concomitant]
     Dosage: 250-50 PRN
  11. ALBUTEROL [Concomitant]
     Dosage: INHALER

REACTIONS (2)
  - Neuroleptic malignant syndrome [Not Recovered/Not Resolved]
  - Leukopenia [Recovered/Resolved]
